FAERS Safety Report 18264182 (Version 2)
Quarter: 2020Q3

REPORT INFORMATION
  Report Type: Report from Study
  Country: US (occurrence: US)
  Receive Date: 20200914
  Receipt Date: 20200923
  Transmission Date: 20201103
  Serious: Yes (Hospitalization)
  Sender: FDA-Public Use
  Company Number: US-TAKEDA-2020TUS038589

PATIENT
  Sex: Female

DRUGS (2)
  1. PONATINIB [Suspect]
     Active Substance: PONATINIB
     Indication: ACUTE LYMPHOCYTIC LEUKAEMIA
     Dosage: 30 MILLIGRAM, QD
     Route: 048
  2. SENNA LAXATIVE [Concomitant]
     Active Substance: SENNOSIDES
     Dosage: UNK
     Route: 065

REACTIONS (8)
  - Rectal haemorrhage [Unknown]
  - Hypoaesthesia [Unknown]
  - Feeling hot [Unknown]
  - Constipation [Unknown]
  - Infection [Unknown]
  - Gait disturbance [Unknown]
  - Dry skin [Unknown]
  - Headache [Unknown]
